FAERS Safety Report 8176108-4 (Version None)
Quarter: 2012Q1

REPORT INFORMATION
  Report Type: 
  Country: None (occurrence: None)
  Receive Date: 20120301
  Receipt Date: 20120220
  Transmission Date: 20120608
  Serious: Yes (Hospitalization)
  Sender: FDA-Public Use
  Company Number: JP-BRISTOL-MYERS SQUIBB COMPANY-16423972

PATIENT
  Age: 19 Year
  Sex: Male

DRUGS (3)
  1. CISPLATIN [Suspect]
     Indication: GERM CELL CANCER
     Dates: start: 19990101
  2. CARBOPLATIN [Suspect]
     Indication: NEOPLASM
  3. ETOPOSIDE [Suspect]
     Indication: GERM CELL CANCER

REACTIONS (1)
  - MENINGIOMA [None]
